FAERS Safety Report 11792549 (Version 1)
Quarter: 2015Q4

REPORT INFORMATION
  Report Type: Report from Study
  Country: CA (occurrence: CA)
  Receive Date: 20151202
  Receipt Date: 20151202
  Transmission Date: 20160305
  Serious: Yes (Hospitalization, Other)
  Sender: FDA-Public Use
  Company Number: CA-BEH-2015056142

PATIENT
  Age: 28 Year
  Sex: Female

DRUGS (1)
  1. HIZENTRA [Suspect]
     Active Substance: HUMAN IMMUNOGLOBULIN G
     Indication: POSTURAL ORTHOSTATIC TACHYCARDIA SYNDROME
     Dosage: PUMP METHOD
     Route: 058
     Dates: start: 20150305

REACTIONS (6)
  - Autoimmune hepatitis [Recovering/Resolving]
  - Blood urine present [Recovered/Resolved]
  - Kidney infection [Recovered/Resolved]
  - Hepatic enzyme increased [Recovering/Resolving]
  - Amenorrhoea [Not Recovered/Not Resolved]
  - Off label use [Unknown]

NARRATIVE: CASE EVENT DATE: 20150305
